FAERS Safety Report 8619044-9 (Version None)
Quarter: 2012Q3

REPORT INFORMATION
  Report Type: 
  Country: None (occurrence: None)
  Receive Date: 20120824
  Receipt Date: 20120816
  Transmission Date: 20120928
  Serious: Yes (Hospitalization)
  Sender: FDA-Public Use
  Company Number: US-BAYER-2012-085541

PATIENT
  Age: 44 Year
  Sex: Female
  Weight: 86.18 kg

DRUGS (24)
  1. FLONASE [Concomitant]
     Dosage: 50 MCG, ONE SPRAY VIA NOSTRIL DAILY
     Route: 045
  2. PAXIL [Concomitant]
     Dosage: 20 MG, DAILY
     Route: 048
  3. QUIXIN [Concomitant]
     Dosage: 0.5 %, Q2HR, TWO DROPS EACH EYE
     Route: 061
  4. ESTRADERM [Concomitant]
  5. AVELOX [Concomitant]
     Indication: CELLULITIS
  6. DIAMOX [Concomitant]
     Indication: MOUNTAIN SICKNESS ACUTE
     Dosage: 250 MG, BID
     Route: 048
  7. SUMATRIPTAN [Concomitant]
     Indication: HEADACHE
     Dosage: 100 MG, PRN
     Route: 048
  8. ULTRACET [Concomitant]
     Indication: PAIN
     Dosage: 37.5-325 MG 1-2 EVERY 6 HOURS AS NEEDED.
     Route: 048
  9. ALEVE [Concomitant]
  10. TORADOL [Concomitant]
     Dosage: 60 MG, NOW
     Route: 030
  11. NAPHCON-A [BENZALKONIUM CHLORIDE,NAPHAZOLINE HYDROCHLORIDE,PHENIRA [Concomitant]
     Indication: EYE PAIN
     Route: 047
  12. ACETAMINOPHEN AND TRAMADOL HCL [Concomitant]
     Indication: PAIN
     Dosage: 37.7 MG/325 MG, 1-2 EVERY SIX HOURS AS NEEDED
     Route: 048
  13. PAROXETINE [Concomitant]
     Dosage: 20 MG, DAILY
     Route: 048
  14. MAXALT [Concomitant]
     Dosage: 10 MG, TAKE AT ONSET OF MIGRAINE
  15. CLARINEX [Concomitant]
     Dosage: UNK UNK, QD
  16. PROMETHEGAN [Concomitant]
     Dosage: 25 MG, EVERY 6 HOURS AS NEEDED
     Route: 054
  17. LUPRON [Concomitant]
  18. VICODIN [Concomitant]
     Dosage: 5-500 MG 1-2 EVERY 4-6 HOURS AS NEEDED
     Route: 048
  19. METHOTREXATE [Concomitant]
     Dosage: 25 MG/ML, INJECT 0.3 ML
     Route: 058
  20. YAZ [Suspect]
  21. MEDROL [Concomitant]
     Dosage: 30 MG, UNK
     Route: 030
  22. PHENERGAN HCL [Concomitant]
     Dosage: 25 MG, EVERY 6 HOURS AS NEEDED PRN
     Route: 054
  23. REMICADE [Concomitant]
     Dosage: 100 MG, EVERY 8 WEEKS, CROSSED OUT
  24. NAPHCON-A [BENZALKONIUM CHLORIDE,NAPHAZOLINE HYDROCHLORIDE,PHENIRA [Concomitant]
     Indication: ERYTHEMA

REACTIONS (1)
  - DEEP VEIN THROMBOSIS [None]
